FAERS Safety Report 9276360 (Version 1)
Quarter: 2013Q2

REPORT INFORMATION
  Report Type: Spontaneous
  Country: US (occurrence: None)
  Receive Date: 20130502
  Receipt Date: 20130502
  Transmission Date: 20140414
  Serious: Yes (Other)
  Sender: FDA-Public Use
  Company Number: None

PATIENT
  Age: 72 Year
  Sex: Female
  Weight: 53.07 kg

DRUGS (1)
  1. NEXIUM [Suspect]
     Indication: GASTROOESOPHAGEAL REFLUX DISEASE
     Dosage: ONE DELAYED-RELEASED, ONE PER EVENING

REACTIONS (7)
  - Headache [None]
  - Local swelling [None]
  - Dizziness [None]
  - Feeling hot [None]
  - Nausea [None]
  - Feeling abnormal [None]
  - Middle insomnia [None]
